FAERS Safety Report 5512131-3 (Version None)
Quarter: 2007Q4

REPORT INFORMATION
  Report Type: 
  Country: None (occurrence: None)
  Receive Date: 20071111
  Receipt Date: 20071022
  Transmission Date: 20080405
  Serious: Yes (Disabling)
  Sender: FDA-Public Use
  Company Number: GB-ALLERGAN-0712289US

PATIENT
  Age: 23 Year
  Sex: Male

DRUGS (2)
  1. DYSPORT [Suspect]
     Indication: MUSCLE SPASTICITY
     Dosage: 700 UNITS, SINGLE
     Route: 030
     Dates: start: 20041124, end: 20041124
  2. DYSPORT [Suspect]
     Dosage: 1000 UNITS, SINGLE
     Route: 030

REACTIONS (1)
  - MUSCULAR WEAKNESS [None]
